FAERS Safety Report 19103220 (Version 1)
Quarter: 2021Q2

REPORT INFORMATION
  Report Type: Report from Study
  Country: RU (occurrence: RU)
  Receive Date: 20210407
  Receipt Date: 20210407
  Transmission Date: 20210717
  Serious: Yes (Hospitalization, Other)
  Sender: FDA-Public Use
  Company Number: RU-INCYTE CORPORATION-2020IN013571

PATIENT

DRUGS (2)
  1. JAKAVI [Suspect]
     Active Substance: RUXOLITINIB
     Indication: MYELOPROLIFERATIVE NEOPLASM
     Dosage: 15 MG, BID
     Route: 065
     Dates: start: 201804
  2. JAKAVI [Suspect]
     Active Substance: RUXOLITINIB
     Indication: MYELOFIBROSIS

REACTIONS (30)
  - Haematocrit decreased [Unknown]
  - Haemoglobin decreased [Unknown]
  - Abdominal lymphadenopathy [Unknown]
  - Monocyte count increased [Unknown]
  - Red cell distribution width increased [Unknown]
  - Blood iron decreased [Unknown]
  - Gallbladder enlargement [Unknown]
  - Gamma-glutamyltransferase increased [Unknown]
  - Nephrolithiasis [Unknown]
  - Cholecystitis acute [Unknown]
  - Obstructive pancreatitis [Unknown]
  - Bile duct stone [Unknown]
  - Blood lactate dehydrogenase increased [Unknown]
  - Platelet count increased [Unknown]
  - Blood cholesterol increased [Unknown]
  - Eosinophil count increased [Unknown]
  - Hepatic cirrhosis [Unknown]
  - Basophil count increased [Unknown]
  - Blood glucose increased [Unknown]
  - Cholecystitis chronic [Unknown]
  - Plateletcrit increased [Unknown]
  - Blood alkaline phosphatase increased [Unknown]
  - Mean cell volume decreased [Unknown]
  - White blood cell count increased [Unknown]
  - Gastrointestinal oedema [Unknown]
  - Lymphadenopathy [Unknown]
  - Peripheral artery thrombosis [Unknown]
  - Ascites [Unknown]
  - Cholelithiasis [Unknown]
  - Hepatic steatosis [Unknown]

NARRATIVE: CASE EVENT DATE: 20200929
